FAERS Safety Report 18230823 (Version 2)
Quarter: 2021Q4

REPORT INFORMATION
  Report Type: Report from Study
  Country: US (occurrence: US)
  Receive Date: 20200904
  Receipt Date: 20211009
  Transmission Date: 20220303
  Serious: No
  Sender: FDA-Public Use
  Company Number: NVSC2020US242796

PATIENT
  Sex: Male

DRUGS (1)
  1. ENTRESTO [Suspect]
     Active Substance: SACUBITRIL\VALSARTAN
     Indication: Product used for unknown indication
     Dosage: 0.5 DF, BID (1AM1/2TABPM)
     Route: 048
     Dates: start: 20191115

REACTIONS (2)
  - Wrong technique in product usage process [Not Recovered/Not Resolved]
  - Product dose omission issue [Unknown]
